FAERS Safety Report 6487437-4 (Version None)
Quarter: 2009Q4

REPORT INFORMATION
  Report Type: 
  Country: None (occurrence: None)
  Receive Date: 20091123
  Receipt Date: 20090911
  Transmission Date: 20100525
  Serious: No
  Sender: FDA-Public Use
  Company Number: 8052561

PATIENT
  Age: 52 Year
  Sex: Male

DRUGS (6)
  1. CIMZIA [Suspect]
     Indication: CROHN'S DISEASE
     Dosage: 400 MG /M SC
     Route: 058
     Dates: start: 20090522
  2. PREDNISON [Concomitant]
  3. ENTOCORT EC [Concomitant]
  4. MERCAPTOPURINE [Concomitant]
  5. ZINC [Concomitant]
  6. VITAMIN D [Concomitant]

REACTIONS (2)
  - DRUG EFFECT DECREASED [None]
  - WEIGHT DECREASED [None]
